FAERS Safety Report 12413157 (Version 1)
Quarter: 2016Q2

REPORT INFORMATION
  Report Type: Spontaneous
  Country: US (occurrence: US)
  Receive Date: 20160527
  Receipt Date: 20160527
  Transmission Date: 20160815
  Serious: No
  Sender: FDA-Public Use
  Company Number: US-BAYER-2016-097922

PATIENT
  Age: 49 Year
  Sex: Female

DRUGS (8)
  1. FUROSEMIDE. [Concomitant]
     Active Substance: FUROSEMIDE
  2. GENGRAF [Concomitant]
     Active Substance: CYCLOSPORINE
  3. POTASSIUM CHLORATE [Concomitant]
     Active Substance: POTASSIUM CHLORATE
  4. ZYRTEC [Concomitant]
     Active Substance: CETIRIZINE HYDROCHLORIDE
  5. FLUTICASONE [Concomitant]
     Active Substance: FLUTICASONE\FLUTICASONE PROPIONATE
  6. IMURAN [Concomitant]
     Active Substance: AZATHIOPRINE
  7. ADEMPAS [Suspect]
     Active Substance: RIOCIGUAT
     Indication: PRODUCT USED FOR UNKNOWN INDICATION
  8. AMBRISENTAN [Suspect]
     Active Substance: AMBRISENTAN
     Indication: PULMONARY ARTERIAL HYPERTENSION
     Dosage: 10 MG, QD
     Route: 048
     Dates: start: 201404

REACTIONS (6)
  - Unevaluable event [None]
  - Dyspnoea [None]
  - Mobility decreased [None]
  - Limb discomfort [None]
  - Fatigue [None]
  - Abdominal distension [None]

NARRATIVE: CASE EVENT DATE: 20160427
